FAERS Safety Report 5418372-8 (Version None)
Quarter: 2007Q3

REPORT INFORMATION
  Report Type: 
  Country: None (occurrence: None)
  Receive Date: 20070817
  Receipt Date: 20070731
  Transmission Date: 20080115
  Serious: Yes (Other)
  Sender: FDA-Public Use
  Company Number: US-SANOFI-SYNTHELABO-A03200704946

PATIENT

DRUGS (4)
  1. FLUOROURACIL [Suspect]
     Dosage: UNK
     Route: 065
  2. AVASTIN [Suspect]
     Dosage: UNK
     Route: 065
  3. ELOXATIN [Suspect]
     Indication: DRUG USE FOR UNKNOWN INDICATION
     Route: 042
  4. LEUCOVORIN CALCIUM [Suspect]
     Dosage: UNK
     Route: 065

REACTIONS (3)
  - CHOLECYSTITIS ACUTE [None]
  - INFLAMMATION [None]
  - PAIN [None]
